FAERS Safety Report 18526237 (Version 1)
Quarter: 2020Q4

REPORT INFORMATION
  Report Type: Spontaneous
  Country: JP (occurrence: JP)
  Receive Date: 20201120
  Receipt Date: 20201120
  Transmission Date: 20210114
  Serious: Yes (Other)
  Sender: FDA-Public Use
  Company Number: NVSJ2020JP009021

PATIENT
  Age: 87 Year
  Sex: Male

DRUGS (22)
  1. BEOVU [Suspect]
     Active Substance: BROLUCIZUMAB-DBLL
     Indication: POLYPOIDAL CHOROIDAL VASCULOPATHY
     Dosage: 6 MG
     Route: 031
     Dates: start: 20200806, end: 20200806
  2. AFLIBERCEPT [Suspect]
     Active Substance: AFLIBERCEPT
     Dosage: 0.05 ML
     Route: 031
  3. AFLIBERCEPT [Suspect]
     Active Substance: AFLIBERCEPT
     Dosage: 0.05 ML
     Route: 031
  4. AFLIBERCEPT [Suspect]
     Active Substance: AFLIBERCEPT
     Dosage: 0.05 ML
     Route: 031
  5. AFLIBERCEPT [Suspect]
     Active Substance: AFLIBERCEPT
     Dosage: 0.05 ML
     Route: 031
  6. AFLIBERCEPT [Suspect]
     Active Substance: AFLIBERCEPT
     Dosage: 0.05 ML
     Route: 031
  7. AFLIBERCEPT [Suspect]
     Active Substance: AFLIBERCEPT
     Dosage: 0.05 ML
     Route: 031
     Dates: start: 20200604, end: 20200604
  8. AFLIBERCEPT [Suspect]
     Active Substance: AFLIBERCEPT
     Dosage: 0.05 ML
     Route: 031
  9. AFLIBERCEPT [Suspect]
     Active Substance: AFLIBERCEPT
     Dosage: 0.05 ML
     Route: 031
  10. AFLIBERCEPT [Suspect]
     Active Substance: AFLIBERCEPT
     Dosage: 0.05 ML
     Route: 031
  11. AFLIBERCEPT [Suspect]
     Active Substance: AFLIBERCEPT
     Dosage: 0.05 ML
     Route: 031
  12. AFLIBERCEPT [Suspect]
     Active Substance: AFLIBERCEPT
     Dosage: 0.05 ML
     Route: 031
  13. AFLIBERCEPT [Suspect]
     Active Substance: AFLIBERCEPT
     Dosage: 0.05 ML
     Route: 031
  14. AFLIBERCEPT [Suspect]
     Active Substance: AFLIBERCEPT
     Dosage: 0.05 ML
     Route: 031
  15. AFLIBERCEPT [Suspect]
     Active Substance: AFLIBERCEPT
     Dosage: 0.05 ML
     Route: 031
  16. AFLIBERCEPT [Suspect]
     Active Substance: AFLIBERCEPT
     Dosage: 0.05 ML
     Route: 031
  17. AFLIBERCEPT [Suspect]
     Active Substance: AFLIBERCEPT
     Dosage: 0.05 ML
     Route: 031
  18. AFLIBERCEPT [Suspect]
     Active Substance: AFLIBERCEPT
     Dosage: 0.05 ML
     Route: 031
  19. AFLIBERCEPT [Suspect]
     Active Substance: AFLIBERCEPT
     Dosage: 0.05 ML
     Route: 031
  20. AFLIBERCEPT [Suspect]
     Active Substance: AFLIBERCEPT
     Indication: POLYPOIDAL CHOROIDAL VASCULOPATHY
     Dosage: 0.05 ML
     Route: 031
     Dates: start: 20151106, end: 20151106
  21. AFLIBERCEPT [Suspect]
     Active Substance: AFLIBERCEPT
     Dosage: 0.05 ML
     Route: 031
  22. AFLIBERCEPT [Suspect]
     Active Substance: AFLIBERCEPT
     Dosage: 0.05 ML
     Route: 031

REACTIONS (7)
  - Blindness transient [Recovering/Resolving]
  - Uveitis [Recovered/Resolved]
  - Keratic precipitates [Unknown]
  - Vision blurred [Unknown]
  - Vitreous opacities [Unknown]
  - Iritis [Recovered/Resolved]
  - Product use in unapproved indication [Unknown]

NARRATIVE: CASE EVENT DATE: 20200903
